FAERS Safety Report 20810590 (Version 6)
Quarter: 2023Q1

REPORT INFORMATION
  Report Type: Spontaneous
  Country: US (occurrence: US)
  Receive Date: 20220510
  Receipt Date: 20230320
  Transmission Date: 20230418
  Serious: No
  Sender: FDA-Public Use
  Company Number: US-PFIZER INC-202200629339

PATIENT
  Age: 68 Year
  Sex: Female

DRUGS (4)
  1. IBRANCE [Suspect]
     Active Substance: PALBOCICLIB
     Indication: Breast cancer stage IV
     Dosage: 100 MG
  2. IBRANCE [Suspect]
     Active Substance: PALBOCICLIB
     Dosage: 75 MG
  3. IBRANCE [Suspect]
     Active Substance: PALBOCICLIB
     Dosage: 75 MG (3X7 AS DIRECTED TAB 21)
     Dates: start: 202203
  4. LETROZOLE [Concomitant]
     Active Substance: LETROZOLE
     Dosage: UNK

REACTIONS (8)
  - Abdominal discomfort [Unknown]
  - Flatulence [Unknown]
  - Constipation [Unknown]
  - White blood cell count decreased [Unknown]
  - COVID-19 [Recovered/Resolved]
  - Alopecia [Unknown]
  - Fatigue [Unknown]
  - Pain in extremity [Unknown]
